FAERS Safety Report 5552476-4 (Version None)
Quarter: 2007Q4

REPORT INFORMATION
  Report Type: 
  Country: None (occurrence: None)
  Receive Date: 20071212
  Receipt Date: 20070616
  Transmission Date: 20080405
  Serious: No
  Sender: FDA-Public Use
  Company Number: US-AMGEN-KDL229993

PATIENT
  Sex: Female

DRUGS (2)
  1. ENBREL [Suspect]
     Indication: RHEUMATOID ARTHRITIS
     Route: 058
     Dates: start: 20031013
  2. METHOTREXATE [Concomitant]
     Dates: start: 20010101

REACTIONS (4)
  - ARTHRALGIA [None]
  - JOINT EFFUSION [None]
  - SKIN LACERATION [None]
  - SKIN NODULE [None]
